FAERS Safety Report 4694970-4 (Version None)
Quarter: 2005Q2

REPORT INFORMATION
  Report Type: 
  Country: None (occurrence: None)
  Receive Date: 20050617
  Receipt Date: 20050607
  Transmission Date: 20051028
  Serious: Yes (Hospitalization)
  Sender: FDA-Public Use
  Company Number: 430005E05GBR

PATIENT
  Age: 47 Year
  Sex: Male

DRUGS (4)
  1. NOVANTRONE [Suspect]
     Indication: B-CELL LYMPHOMA
  2. CHLORAMBUCIL [Suspect]
     Indication: B-CELL LYMPHOMA
     Dosage: ORAL
     Route: 048
     Dates: start: 20050330, end: 20050409
  3. DEXAMETHASONE [Suspect]
     Indication: B-CELL LYMPHOMA
     Dosage: ORAL
     Route: 048
     Dates: start: 20050404
  4. BACTRIM [Concomitant]

REACTIONS (3)
  - DIARRHOEA [None]
  - NEUTROPENIC SEPSIS [None]
  - TACHYCARDIA [None]
